FAERS Safety Report 25118369 (Version 2)
Quarter: 2025Q2

REPORT INFORMATION
  Report Type: Report from Study
  Country: US (occurrence: US)
  Receive Date: 20250325
  Receipt Date: 20250423
  Transmission Date: 20250717
  Serious: Yes (Hospitalization)
  Sender: AVERITAS
  Company Number: US-GRUNENTHAL-2025-104212

PATIENT
  Sex: Male

DRUGS (1)
  1. QUTENZA [Suspect]
     Active Substance: CAPSAICIN
     Indication: Diabetic neuropathy
     Route: 061
     Dates: start: 20241204, end: 20241204

REACTIONS (3)
  - Pruritus [Unknown]
  - Feeling hot [Unknown]
  - Cough [Unknown]

NARRATIVE: CASE EVENT DATE: 20241201
